FAERS Safety Report 7553769-1 (Version None)
Quarter: 2011Q2

REPORT INFORMATION
  Report Type: 
  Country: None (occurrence: None)
  Receive Date: 20110609
  Receipt Date: 20110517
  Transmission Date: 20111010
  Serious: Yes (Hospitalization)
  Sender: FDA-Public Use
  Company Number: 2135225-2011-00051

PATIENT
  Age: 61 Year
  Sex: Female

DRUGS (1)
  1. AETOXISCLEROL TAMPONNE 0.5% [Suspect]
     Indication: SCLEROTHERAPY
     Dosage: 10 CC FOAM, I.V.
     Route: 042
     Dates: start: 20110318

REACTIONS (7)
  - HYPERTENSION [None]
  - PALPITATIONS [None]
  - ISCHAEMIC STROKE [None]
  - NERVOUS SYSTEM DISORDER [None]
  - URINARY INCONTINENCE [None]
  - CAROTID ARTERIOSCLEROSIS [None]
  - ATRIOVENTRICULAR BLOCK FIRST DEGREE [None]
